FAERS Safety Report 25808492 (Version 4)
Quarter: 2025Q4

REPORT INFORMATION
  Report Type: Report from Study
  Country: US (occurrence: US)
  Receive Date: 20250916
  Receipt Date: 20251112
  Transmission Date: 20260118
  Serious: Yes (Other)
  Sender: ABBVIE
  Company Number: US-ABBVIE-5685010

PATIENT
  Age: 56 Year
  Sex: Female

DRUGS (3)
  1. RINVOQ [Suspect]
     Active Substance: UPADACITINIB
     Indication: Psoriatic arthropathy
     Route: 048
     Dates: start: 20230509, end: 20250914
  2. RINVOQ [Suspect]
     Active Substance: UPADACITINIB
     Indication: Psoriatic arthropathy
     Route: 048
  3. RINVOQ [Suspect]
     Active Substance: UPADACITINIB
     Indication: Psoriatic arthropathy
     Route: 048
     Dates: start: 20251012

REACTIONS (14)
  - Knee operation [Recovering/Resolving]
  - Fatigue [Not Recovered/Not Resolved]
  - Arthralgia [Not Recovered/Not Resolved]
  - Aphasia [Unknown]
  - Blood growth hormone abnormal [Not Recovered/Not Resolved]
  - Inflammation [Unknown]
  - Polyarthritis [Unknown]
  - Dermatitis psoriasiform [Recovering/Resolving]
  - Joint injury [Unknown]
  - Rash [Recovering/Resolving]
  - Musculoskeletal discomfort [Recovering/Resolving]
  - Nervous system disorder [Not Recovered/Not Resolved]
  - Foot operation [Unknown]
  - Lymphadenopathy [Not Recovered/Not Resolved]

NARRATIVE: CASE EVENT DATE: 20230501
